FAERS Safety Report 8011317-6 (Version None)
Quarter: 2011Q4

REPORT INFORMATION
  Report Type: 
  Country: None (occurrence: None)
  Receive Date: 20111228
  Receipt Date: 20111223
  Transmission Date: 20120403
  Serious: Yes (Disabling, Other)
  Sender: FDA-Public Use
  Company Number: FR-PFIZER INC-2011161640

PATIENT
  Age: 64 Year
  Sex: Male
  Weight: 52 kg

DRUGS (3)
  1. ATORVASTATIN CALCIUM [Suspect]
     Indication: HYPERCHOLESTEROLAEMIA
     Dosage: 10 MG, DAILY
     Route: 048
     Dates: start: 20090803, end: 20110101
  2. TAMSULOSIN [Concomitant]
     Dosage: UNK
     Route: 048
  3. NEXIUM [Concomitant]
     Dosage: UNK
     Route: 048

REACTIONS (2)
  - ORGANISING PNEUMONIA [None]
  - PROCEDURAL COMPLICATION [None]
